FAERS Safety Report 5515779-5 (Version None)
Quarter: 2007Q4

REPORT INFORMATION
  Report Type: 
  Country: None (occurrence: None)
  Receive Date: 20071114
  Receipt Date: 20071102
  Transmission Date: 20080405
  Serious: Yes (Life-Threatening, Hospitalization, Other)
  Sender: FDA-Public Use
  Company Number: JP-JNJFOC-20070801817

PATIENT
  Age: 59 Year
  Sex: Male
  Weight: 70 kg

DRUGS (19)
  1. HALOPERIDOL DECANOATE [Suspect]
     Indication: DRUG USE FOR UNKNOWN INDICATION
     Route: 030
  2. RISPERIDONE [Concomitant]
     Route: 048
  3. LORAZEPAM [Concomitant]
     Route: 048
  4. MECOBALAMIN [Concomitant]
     Route: 048
  5. CLOSTRIDIUM BUTYRICUM [Concomitant]
     Route: 048
  6. BIPERIDIN [Concomitant]
     Route: 048
  7. PROMETHAZINE [Concomitant]
     Route: 048
  8. PROMETHAZINE [Concomitant]
     Route: 048
  9. TANDOSPIRONE [Concomitant]
     Route: 048
  10. PROPIVERINE [Concomitant]
     Route: 048
  11. FERROUS CITRATE [Concomitant]
     Route: 048
  12. FAMOTIDINE [Concomitant]
     Route: 048
  13. MOSAPRIDE [Concomitant]
     Route: 048
  14. VEGETAMIN-A [Concomitant]
     Route: 048
  15. NITRAZEPAM [Concomitant]
     Route: 048
  16. LEVOMEPROMAZINE [Concomitant]
     Route: 048
  17. NICOTINAMIDE [Concomitant]
     Route: 048
  18. ZOPICLONE [Concomitant]
     Route: 048
  19. MOSAPRIDE [Concomitant]
     Route: 048

REACTIONS (7)
  - BRONCHIAL SECRETION RETENTION [None]
  - CARDIO-RESPIRATORY ARREST [None]
  - DYSPHAGIA [None]
  - HYPOXIC ENCEPHALOPATHY [None]
  - NEUROLEPTIC MALIGNANT SYNDROME [None]
  - PNEUMONIA [None]
  - SUBCUTANEOUS HAEMATOMA [None]
